FAERS Safety Report 20956378 (Version 1)
Quarter: 2022Q2

REPORT INFORMATION
  Report Type: Spontaneous
  Country: US (occurrence: None)
  Receive Date: 20220614
  Receipt Date: 20220614
  Transmission Date: 20220720
  Serious: No
  Sender: FDA-Public Use
  Company Number: None

PATIENT
  Age: 73 Year
  Sex: Male
  Weight: 115.67 kg

DRUGS (1)
  1. EMPAGLIFLOZIN [Suspect]
     Active Substance: EMPAGLIFLOZIN
     Indication: Cardiac failure congestive
     Dosage: 12.5MG AM PO? ?
     Route: 048
     Dates: start: 20210909, end: 20211012

REACTIONS (2)
  - Infection [None]
  - Toe amputation [None]

NARRATIVE: CASE EVENT DATE: 20211201
